FAERS Safety Report 17307171 (Version 1)
Quarter: 2020Q1

REPORT INFORMATION
  Report Type: Spontaneous
  Country: NL (occurrence: NL)
  Receive Date: 20200123
  Receipt Date: 20200123
  Transmission Date: 20200409
  Serious: Yes (Other)
  Sender: FDA-Public Use
  Company Number: NL-AUROBINDO-AUR-APL-2020-003068

PATIENT
  Age: 62 Year
  Sex: Female
  Weight: 115 kg

DRUGS (1)
  1. LOSARTAN FILM-COATED TABLETS 50MG [Suspect]
     Active Substance: LOSARTAN
     Indication: HYPERTENSION
     Dosage: 50 MILLIGRAM, ONCE A DAY, MEDICINE PRESCRIBED BY DOCTOR: YES
     Route: 065
     Dates: start: 20190703, end: 20191226

REACTIONS (4)
  - Therapeutic response unexpected [Unknown]
  - Heart rate increased [Not Recovered/Not Resolved]
  - Syncope [Unknown]
  - Palpitations [Not Recovered/Not Resolved]

NARRATIVE: CASE EVENT DATE: 20190825
